FAERS Safety Report 5596586-4 (Version None)
Quarter: 2007Q4

REPORT INFORMATION
  Report Type: 
  Country: None (occurrence: None)
  Receive Date: 20071219
  Receipt Date: 20070917
  Transmission Date: 20080405
  Serious: Yes (Other)
  Sender: FDA-Public Use
  Company Number: HQWYE207418SEP07

PATIENT
  Age: 71 Year
  Sex: Male
  Weight: 95.34 kg

DRUGS (8)
  1. TORISEL [Suspect]
     Indication: RENAL CANCER METASTATIC
     Dosage: 25 MG 1X PER 1 WK, INTRAVENOUS
     Route: 042
     Dates: start: 20070718, end: 20070823
  2. SIMVASTATIN [Concomitant]
  3. COREG [Concomitant]
  4. COUMADIN [Concomitant]
  5. PROTONIX [Concomitant]
  6. DIGOXIN [Concomitant]
  7. ISOSORBIDE MONONITRATE [Concomitant]
  8. LISINOPRIL [Concomitant]

REACTIONS (9)
  - BLOOD CHOLESTEROL INCREASED [None]
  - BLOOD TRIGLYCERIDES INCREASED [None]
  - CHILLS [None]
  - DECREASED APPETITE [None]
  - GOUT [None]
  - OEDEMA PERIPHERAL [None]
  - PAIN IN EXTREMITY [None]
  - PRURITUS [None]
  - RASH [None]
